FAERS Safety Report 7008033-6 (Version None)
Quarter: 2010Q3

REPORT INFORMATION
  Report Type: 
  Country: None (occurrence: None)
  Receive Date: 20100922
  Receipt Date: 20100914
  Transmission Date: 20110219
  Serious: Yes (Hospitalization, Other)
  Sender: FDA-Public Use
  Company Number: US-SANOFI-AVENTIS-2010SA047610

PATIENT
  Age: 81 Year
  Sex: Male
  Weight: 90.71 kg

DRUGS (18)
  1. LANTUS [Suspect]
     Indication: TYPE 2 DIABETES MELLITUS
     Dosage: DOSE:24 UNIT(S)
     Route: 058
     Dates: start: 20051223
  2. OPTICLICK [Suspect]
     Dates: start: 20051223
  3. ADVAIR DISKUS 100/50 [Concomitant]
     Dosage: 1 INHALATION TWICE A DAY250/50 MCG
     Dates: start: 20070220
  4. ALBUTEROL SULFATE [Concomitant]
     Dosage: 1 UNIT DOSE VIA NEBULIZED 4 TIME A DAY AS NEEDED
     Dates: start: 20050413
  5. AMLODIPINE [Concomitant]
     Route: 048
     Dates: start: 20070530
  6. ASPIRIN [Concomitant]
     Route: 048
     Dates: start: 20070611
  7. FUROSEMIDE [Concomitant]
     Route: 048
     Dates: start: 20040826
  8. GABAPENTIN [Concomitant]
     Route: 048
     Dates: start: 20091106
  9. GLIPIZIDE [Concomitant]
     Route: 048
     Dates: start: 20091214
  10. ACETAMINOPHEN AND HYDROCODONE BITARTRATE [Concomitant]
     Dosage: 5-500 1 TO 2 TAB Q 6 HR AS NEEDED
     Dates: start: 20060711
  11. JANUVIA [Concomitant]
     Route: 048
     Dates: start: 20080715
  12. METOPROLOL SUCCINATE [Concomitant]
     Indication: BLOOD PRESSURE
     Route: 048
     Dates: start: 20081212
  13. POLYETHYLENE GLYCOL [Concomitant]
     Indication: CONSTIPATION
     Dosage: 1 CAPFUL IN 8 OZ JUICEDAILY
     Dates: start: 20081212
  14. PRAVASTATIN [Concomitant]
     Route: 048
     Dates: start: 20100322
  15. PREDNISONE [Concomitant]
     Dosage: 1 TAB AS DIRECTED
     Dates: start: 20100106
  16. RANITIDINE [Concomitant]
     Route: 048
     Dates: start: 20050706
  17. TIOTROPIUM BROMIDE [Concomitant]
     Dates: start: 20070711
  18. TRIAMCINOLONE ACETONIDE [Concomitant]
     Dosage: APPLY SPARINGLY TO AFFECTED AREA AM AND PM
     Dates: start: 20090409

REACTIONS (3)
  - CATARACT [None]
  - LUNG DISORDER [None]
  - MACULAR DEGENERATION [None]
